FAERS Safety Report 5138731-0 (Version None)
Quarter: 2006Q4

REPORT INFORMATION
  Report Type: 
  Country: None (occurrence: None)
  Receive Date: 20061030
  Receipt Date: 20061003
  Transmission Date: 20070319
  Serious: Yes (Death, Other)
  Sender: FDA-Public Use
  Company Number: ZA-NOVOPROD-257465

PATIENT
  Age: 86 Year
  Sex: Female
  Weight: 80 kg

DRUGS (11)
  1. NOVOMIX 30 [Suspect]
     Indication: DIABETES MELLITUS
     Dosage: 70 U, QD
     Route: 058
     Dates: start: 20060822, end: 20060824
  2. NOVOMIX 30 [Suspect]
     Dosage: 15 U, QD
     Route: 058
     Dates: start: 20060824, end: 20060801
  3. NOVOMIX 30 [Suspect]
     Dosage: 10 U, QD
     Route: 058
     Dates: start: 20060801
  4. NOVOMIX 30 [Suspect]
     Dosage: 20 U, BID
     Route: 058
     Dates: start: 20060820, end: 20060822
  5. AMARYL [Concomitant]
     Dosage: ? TBL MANE
  6. ADALAT [Concomitant]
     Dosage: 30 UNK, UNK
  7. BRINERDIN                          /01077501/ [Concomitant]
     Dosage: 1 MANE
  8. ELTROXIN [Concomitant]
     Dosage: 100 UG, QD
  9. PANAMOR [Concomitant]
     Dosage: 75 MG, QD
  10. DISPRIN                            /00002701/ [Concomitant]
  11. DOLOROL                            /00020001/ [Concomitant]
     Dosage: 1 UNK, UNK
     Dates: start: 20060829

REACTIONS (8)
  - DYSPHAGIA [None]
  - FACE OEDEMA [None]
  - HEMIPLEGIA [None]
  - HYPERSENSITIVITY [None]
  - MULTI-ORGAN FAILURE [None]
  - OEDEMA PERIPHERAL [None]
  - RALES [None]
  - TONGUE OEDEMA [None]
